FAERS Safety Report 19510046 (Version 1)
Quarter: 2021Q3

REPORT INFORMATION
  Report Type: Spontaneous
  Country: US (occurrence: US)
  Receive Date: 20210708
  Receipt Date: 20210708
  Transmission Date: 20211014
  Serious: No
  Sender: FDA-Public Use
  Company Number: US-TAKEDA-2021TUS041169

PATIENT
  Sex: Female
  Weight: 83.9 kg

DRUGS (15)
  1. MELATONIN [Concomitant]
     Active Substance: MELATONIN
  2. OMEGA 3 FISH OIL [Concomitant]
     Active Substance: FISH OIL\OMEGA-3 FATTY ACIDS
     Dosage: 880 UNK
  3. FLUOCINONIDE. [Concomitant]
     Active Substance: FLUOCINONIDE
  4. NYSTATIN. [Concomitant]
     Active Substance: NYSTATIN
  5. APPLE CIDER VINEGAR [Concomitant]
     Active Substance: APPLE CIDER VINEGAR
  6. ALUNBRIG [Suspect]
     Active Substance: BRIGATINIB
     Indication: LUNG NEOPLASM MALIGNANT
     Dosage: 180 MILLIGRAM, QD
     Route: 048
  7. CLOBETASOL PROPIONATE. [Concomitant]
     Active Substance: CLOBETASOL PROPIONATE
  8. COREG [Concomitant]
     Active Substance: CARVEDILOL
     Dosage: 25 MILLIGRAM
  9. INSPRA [Concomitant]
     Active Substance: EPLERENONE
  10. VITAMIN C [Concomitant]
     Active Substance: ASCORBIC ACID
  11. MULTIVITAMIN [Concomitant]
     Active Substance: VITAMINS
  12. ENTRESTO [Concomitant]
     Active Substance: SACUBITRIL\VALSARTAN
  13. CLARITIN [Concomitant]
     Active Substance: LORATADINE
     Dosage: 10 MILLIGRAM
  14. COENZYME Q10 [Concomitant]
     Active Substance: DIETARY SUPPLEMENT\UBIDECARENONE
     Dosage: 400 MILLIGRAM
  15. DESONIDE. [Concomitant]
     Active Substance: DESONIDE

REACTIONS (5)
  - Eczema [Unknown]
  - Rash macular [Unknown]
  - Blood pressure increased [Unknown]
  - Diarrhoea [Unknown]
  - Rash maculo-papular [Unknown]
